FAERS Safety Report 5267788-1 (Version None)
Quarter: 2007Q1

REPORT INFORMATION
  Report Type: 
  Country: None (occurrence: None)
  Receive Date: 20070316
  Receipt Date: 20070306
  Transmission Date: 20070707
  Serious: Yes (Hospitalization)
  Sender: FDA-Public Use
  Company Number: US-PFIZER INC-2007017890

PATIENT
  Age: 78 Year
  Sex: Male

DRUGS (5)
  1. LIPITOR [Suspect]
     Indication: BLOOD CHOLESTEROL INCREASED
     Dosage: DAILY DOSE:40MG-FREQ:DAILY
     Dates: start: 20000101, end: 20070115
  2. ZETIA [Suspect]
     Indication: BLOOD CHOLESTEROL INCREASED
     Dosage: DAILY DOSE:10MG
     Dates: start: 20000101, end: 20070115
  3. LANTUS [Suspect]
     Indication: DIABETES MELLITUS
     Dosage: FREQ:DAILY
  4. HUMALOG [Suspect]
     Indication: DIABETES MELLITUS
     Dosage: FREQ:DAILY
  5. WARFARIN SODIUM [Suspect]
     Dosage: DAILY DOSE:7.14MG-FREQ:DAILY

REACTIONS (3)
  - HAEMORRHAGE [None]
  - MYOPATHY [None]
  - MYOSITIS [None]
